FAERS Safety Report 7546341-0 (Version None)
Quarter: 2011Q2

REPORT INFORMATION
  Report Type: 
  Country: None (occurrence: None)
  Receive Date: 20110614
  Receipt Date: 20070910
  Transmission Date: 20111010
  Serious: Yes (Death, Hospitalization)
  Sender: FDA-Public Use
  Company Number: PHEH2007US11229

PATIENT
  Sex: Male
  Weight: 61.678 kg

DRUGS (6)
  1. LASIX [Concomitant]
     Dosage: 20 MG, UNK
  2. TESSALON [Concomitant]
     Indication: COUGH
  3. LANOXIN [Concomitant]
     Dosage: 0.125 MG, UNK
  4. POTASSIUM CHLORIDE [Concomitant]
     Dosage: 8 MEQ, UNK
  5. EXJADE [Suspect]
     Indication: IRON OVERLOAD
     Dosage: 500 MG, TID
     Route: 048
     Dates: start: 20070313, end: 20070908
  6. HYDROCODONE BITARTRATE [Concomitant]
     Dosage: 5 MG, UNK

REACTIONS (29)
  - DISTURBANCE IN ATTENTION [None]
  - STAPHYLOCOCCAL INFECTION [None]
  - SKIN TURGOR DECREASED [None]
  - CHRONIC LYMPHOCYTIC LEUKAEMIA [None]
  - UNRESPONSIVE TO STIMULI [None]
  - HYPOALBUMINAEMIA [None]
  - PYREXIA [None]
  - CARDIOMEGALY [None]
  - ABNORMAL FAECES [None]
  - LUNG DISORDER [None]
  - LEFT VENTRICULAR HEAVE [None]
  - FAECAL INCONTINENCE [None]
  - RESPIRATORY RATE DECREASED [None]
  - IMMUNE SYSTEM DISORDER [None]
  - ATRIAL FIBRILLATION [None]
  - PANCYTOPENIA [None]
  - SEPSIS [None]
  - ATRIAL TACHYCARDIA [None]
  - RALES [None]
  - HYPOKALAEMIA [None]
  - HEART RATE INCREASED [None]
  - DIARRHOEA [None]
  - SALIVARY HYPERSECRETION [None]
  - DEHYDRATION [None]
  - ASTHENIA [None]
  - DISORIENTATION [None]
  - STARING [None]
  - CARDIAC FAILURE CONGESTIVE [None]
  - HYPOTENSION [None]
